FAERS Safety Report 9051767 (Version 1)
Quarter: 2013Q1

REPORT INFORMATION
  Report Type: Spontaneous
  Country: US (occurrence: US)
  Receive Date: 20130207
  Receipt Date: 20130207
  Transmission Date: 20140127
  Serious: No
  Sender: FDA-Public Use
  Company Number: US-009507513-1302USA000714

PATIENT
  Sex: Male

DRUGS (1)
  1. INTRONA [Suspect]
     Indication: MALIGNANT MELANOMA
     Dosage: UNK
     Dates: end: 20130130

REACTIONS (1)
  - Blood triglycerides increased [Unknown]
